FAERS Safety Report 8356475-9 (Version None)
Quarter: 2012Q2

REPORT INFORMATION
  Report Type: 
  Country: None (occurrence: None)
  Receive Date: 20120514
  Receipt Date: 20120503
  Transmission Date: 20120825
  Serious: Yes (Other)
  Sender: FDA-Public Use
  Company Number: US-RB-039267-12

PATIENT
  Age: 72 Year
  Sex: Male

DRUGS (1)
  1. MUCINEX [Suspect]
     Indication: PRODUCT USED FOR UNKNOWN INDICATION
     Dosage: TOOK 20 ML ONCE OR TWICE DAILY, AS NEEDED
     Route: 048

REACTIONS (4)
  - ABDOMINAL PAIN UPPER [None]
  - HALLUCINATION [None]
  - HYPERHIDROSIS [None]
  - DIARRHOEA [None]
